FAERS Safety Report 6199429-3 (Version None)
Quarter: 2009Q2

REPORT INFORMATION
  Report Type: 
  Country: None (occurrence: None)
  Receive Date: 20090519
  Receipt Date: 20090405
  Transmission Date: 20091009
  Serious: Yes (Hospitalization)
  Sender: FDA-Public Use
  Company Number: 127394

PATIENT
  Age: 67 Year
  Sex: Male
  Weight: 87 kg

DRUGS (2)
  1. CARBOPLATIN [Suspect]
     Indication: LUNG NEOPLASM MALIGNANT
  2. GEMCITABINE [Suspect]
     Indication: LUNG NEOPLASM MALIGNANT

REACTIONS (1)
  - OEDEMA PERIPHERAL [None]
